FAERS Safety Report 5240879-7 (Version None)
Quarter: 2007Q1

REPORT INFORMATION
  Report Type: 
  Country: None (occurrence: None)
  Receive Date: 20061201
  Receipt Date: 20060906
  Transmission Date: 20070707
  Serious: No
  Sender: FDA-Public Use
  Company Number: 2006PV020826

PATIENT
  Age: 63 Year
  Sex: Female
  Weight: 78.9259 kg

DRUGS (18)
  1. BYETTA [Suspect]
     Indication: DIABETES MELLITUS NON-INSULIN-DEPENDENT
     Dosage: SEE IMAGE
     Route: 058
     Dates: start: 20060501, end: 20060601
  2. BYETTA [Suspect]
     Indication: DIABETES MELLITUS NON-INSULIN-DEPENDENT
     Dosage: SEE IMAGE
     Route: 058
     Dates: start: 20060601
  3. AVANDIA [Suspect]
     Dates: start: 20060501, end: 20060501
  4. METFORMIN HCL [Concomitant]
  5. STARLIX [Concomitant]
  6. PREVACID [Concomitant]
  7. FAMOTIDINE [Concomitant]
  8. PLAVIX [Concomitant]
  9. TOPROL-XL [Concomitant]
  10. ALTACE [Concomitant]
  11. ASPIRIN [Concomitant]
  12. ALLOPURINOL [Concomitant]
  13. CRESTOR [Concomitant]
  14. TRICOR [Concomitant]
  15. ESTRACE [Concomitant]
  16. FOLIC ACID [Concomitant]
  17. XIFAXAN [Concomitant]
  18. ASACOL [Concomitant]

REACTIONS (5)
  - GASTROENTERITIS VIRAL [None]
  - NAUSEA [None]
  - VOMITING [None]
  - WEIGHT DECREASED [None]
  - WEIGHT INCREASED [None]
